FAERS Safety Report 10073929 (Version 1)
Quarter: 2014Q2

REPORT INFORMATION
  Report Type: Spontaneous
  Country: US (occurrence: US)
  Receive Date: 20140412
  Receipt Date: 20140412
  Transmission Date: 20141212
  Serious: No
  Sender: FDA-Public Use
  Company Number: US-009507513-1404USA005740

PATIENT
  Age: 45 Year
  Sex: Female
  Weight: 86.17 kg

DRUGS (14)
  1. PEGINTRON [Suspect]
     Dosage: 150 MICROGRAM WEEKLY FOR 12 WEEKS
  2. PROMETHAZINE [Concomitant]
  3. RIBAPAK [Concomitant]
     Dosage: 1200/DAY
  4. SOVALDI [Concomitant]
  5. ZOLPIDEM TARTRATE [Concomitant]
  6. OMEGA-3 MARINE TRIGLYCERIDES [Concomitant]
     Dosage: 1000 MG
  7. FLAXSEED [Concomitant]
     Dosage: 1000 MG
  8. RANITIDINE [Concomitant]
  9. OMEPRAZOLE [Concomitant]
  10. LEVOCETIRIZINE [Concomitant]
  11. FLEXERIL [Concomitant]
  12. IBUPROFEN [Concomitant]
  13. FUROSEMIDE [Concomitant]
  14. POTASSIUM CHLORIDE [Concomitant]
     Dosage: 10 MEQ CR

REACTIONS (4)
  - Insomnia [Unknown]
  - Nausea [Unknown]
  - Vomiting [Unknown]
  - Fatigue [Unknown]
